FAERS Safety Report 4595454-4 (Version None)
Quarter: 2005Q1

REPORT INFORMATION
  Report Type: 
  Country: None (occurrence: None)
  Receive Date: 20050224
  Receipt Date: 20050204
  Transmission Date: 20050727
  Serious: Yes (Hospitalization)
  Sender: FDA-Public Use
  Company Number: USA040464894

PATIENT
  Age: 81 Year
  Sex: Female
  Weight: 47 kg

DRUGS (1)
  1. FORTEO [Suspect]
     Indication: OSTEOPOROSIS
     Dosage: 20 UG

REACTIONS (5)
  - DEVICE FAILURE [None]
  - DIARRHOEA [None]
  - FOREIGN BODY TRAUMA [None]
  - PAIN TRAUMA ACTIVATED [None]
  - PHARMACEUTICAL PRODUCT COMPLAINT [None]
